FAERS Safety Report 4366189-8 (Version None)
Quarter: 2004Q2

REPORT INFORMATION
  Report Type: 
  Country: None (occurrence: None)
  Receive Date: 20040524
  Receipt Date: 20031002
  Transmission Date: 20050107
  Serious: Yes (Hospitalization, Other)
  Sender: FDA-Public Use
  Company Number: 2003178086JP

PATIENT
  Age: 71 Year
  Sex: Male

DRUGS (4)
  1. CAMPTOSAR [Suspect]
     Indication: SMALL CELL LUNG CANCER STAGE UNSPECIFIED
     Dosage: 62 MG, CYCLIC, IV DRIP
     Route: 041
     Dates: start: 20030712, end: 20030821
  2. PARAPLATIN [Suspect]
     Indication: SMALL CELL LUNG CANCER STAGE UNSPECIFIED
     Dosage: 290 MG, CYCLIC, IV DRIP
     Route: 041
     Dates: start: 20030712, end: 20030814
  3. OMEGACIN [Concomitant]
  4. DIFLUCAN [Concomitant]

REACTIONS (2)
  - DIARRHOEA [None]
  - INTERSTITIAL LUNG DISEASE [None]
